FAERS Safety Report 6631402-0 (Version None)
Quarter: 2010Q1

REPORT INFORMATION
  Report Type: 
  Country: None (occurrence: None)
  Receive Date: 20100311
  Receipt Date: 20100311
  Transmission Date: 20100710
  Serious: No
  Sender: FDA-Public Use
  Company Number: None

PATIENT
  Age: 66 Year
  Sex: Female
  Weight: 85.7298 kg

DRUGS (1)
  1. LEVAQUIN [Suspect]
     Indication: SINUSITIS
     Dosage: 1 TAB DAILY
     Dates: start: 20100211, end: 20100213

REACTIONS (6)
  - ARTHRALGIA [None]
  - DYSKINESIA [None]
  - GAIT DISTURBANCE [None]
  - INSOMNIA [None]
  - JOINT STIFFNESS [None]
  - MUSCLE SPASMS [None]
